FAERS Safety Report 23224839 (Version 10)
Quarter: 2025Q2

REPORT INFORMATION
  Report Type: Report from Study
  Country: CA (occurrence: CA)
  Receive Date: 20231124
  Receipt Date: 20250416
  Transmission Date: 20250717
  Serious: No
  Sender: TAKEDA
  Company Number: CA-TAKEDA-2022TUS049918

PATIENT
  Age: 59 Year
  Sex: Male

DRUGS (3)
  1. VEDOLIZUMAB [Suspect]
     Active Substance: VEDOLIZUMAB
     Indication: Crohn^s disease
  2. VEDOLIZUMAB [Suspect]
     Active Substance: VEDOLIZUMAB
     Dosage: 300 MILLIGRAM, Q4WEEKS
     Dates: start: 20220915
  3. ENTOCORT [Concomitant]
     Active Substance: BUDESONIDE

REACTIONS (9)
  - Diarrhoea [Unknown]
  - Frequent bowel movements [Unknown]
  - Feeling abnormal [Unknown]
  - Faeces soft [Unknown]
  - Off label use [Unknown]
  - Malaise [Unknown]
  - Abdominal pain [Recovered/Resolved]
  - Rash [Unknown]
  - Arthralgia [Unknown]

NARRATIVE: CASE EVENT DATE: 20220915
